FAERS Safety Report 20234398 (Version 1)
Quarter: 2021Q4

REPORT INFORMATION
  Report Type: Spontaneous
  Country: CA (occurrence: CA)
  Receive Date: 20211227
  Receipt Date: 20211227
  Transmission Date: 20220303
  Serious: Yes (Life-Threatening)
  Sender: FDA-Public Use
  Company Number: CA-TEVA-2021-CA-1992018

PATIENT
  Age: 35 Year
  Sex: Female
  Weight: 56.750 kg

DRUGS (1)
  1. ALBUTEROL [Suspect]
     Active Substance: ALBUTEROL
     Dosage: INHALATION, METERED-DOSE (AEROSOL)

REACTIONS (1)
  - Device malfunction [Recovered/Resolved]
